FAERS Safety Report 5387423-1 (Version None)
Quarter: 2007Q3

REPORT INFORMATION
  Report Type: 
  Country: None (occurrence: None)
  Receive Date: 20070712
  Receipt Date: 20070622
  Transmission Date: 20080115
  Serious: Yes (Hospitalization)
  Sender: FDA-Public Use
  Company Number: DAV-AE-MTX-07-019

PATIENT
  Age: 14 Year
  Sex: Male

DRUGS (1)
  1. METHOTREXATE [Suspect]
     Indication: ACUTE LYMPHOCYTIC LEUKAEMIA
     Dosage: INTRATHECAL (IT); 9 YEARS AGO
     Route: 037

REACTIONS (3)
  - ANAPLASTIC ASTROCYTOMA [None]
  - GRAND MAL CONVULSION [None]
  - LEUKOENCEPHALOMYELITIS [None]
